FAERS Safety Report 7656151 (Version 5)
Quarter: 2013Q4

REPORT INFORMATION
  Report Type: Spontaneous
  Country: US (occurrence: US)
  Receive Date: 20101104
  Receipt Date: 20131118
  Transmission Date: 20140711
  Serious: Yes (Other)
  Sender: FDA-Public Use
  Company Number: US-BAYER-201035562NA

PATIENT
  Age: 25 Year
  Sex: Female
  Weight: 81.63 kg

DRUGS (22)
  1. YAZ [Suspect]
     Indication: CONTRACEPTION
     Route: 048
  2. YAZ [Suspect]
     Indication: PROPHYLAXIS
  3. YASMIN [Suspect]
     Indication: CONTRACEPTION
     Route: 048
  4. MAXALT [Concomitant]
  5. TOPROL [Concomitant]
     Indication: TACHYCARDIA
  6. ZOLOFT [Concomitant]
     Indication: TACHYCARDIA
  7. LORAZEPAM [Concomitant]
     Indication: TACHYCARDIA
  8. VITAMIN D NOS [Concomitant]
  9. ATIVAN [Concomitant]
  10. MACROBID [Concomitant]
  11. HYDROCODONE [HYDROCODONE] [Concomitant]
  12. REGLAN [Concomitant]
  13. MICRONOR [Concomitant]
     Dosage: UNK
     Dates: start: 20060706, end: 20070427
  14. CYCLOBENZAPRINE [Concomitant]
     Dosage: 10 MG, UNK
  15. PROPOXYPHENE NAPSYLATE W/ACETAMINOPHENE [Concomitant]
  16. PROPAFENONE [Concomitant]
     Dosage: 300 MG, UNK
  17. HYDROXYZINE PAMOATE [Concomitant]
     Dosage: 50 MG, UNK
  18. AZITHROMYCIN [Concomitant]
     Dosage: 250 MG, UNK
  19. NAPROXEN [Concomitant]
  20. CIPRO [Concomitant]
  21. DECONSAL [GUAIFENESIN,PSEUDOEPHEDRINE HYDROCHLORIDE] [Concomitant]
     Indication: FUNGAL INFECTION
  22. FLEXERIL [Concomitant]

REACTIONS (5)
  - Cholelithiasis [None]
  - Cholecystitis chronic [None]
  - Nephrolithiasis [Unknown]
  - Nephrolithiasis [Unknown]
  - Nephrolithiasis [Unknown]
